FAERS Safety Report 23915688 (Version 1)
Quarter: 2024Q2

REPORT INFORMATION
  Report Type: Spontaneous
  Country: US (occurrence: US)
  Receive Date: 20240529
  Receipt Date: 20240529
  Transmission Date: 20240716
  Serious: Yes (Death)
  Sender: FDA-Public Use
  Company Number: US-FMCRTG-FMC-2405-000576

PATIENT
  Age: 54 Year
  Sex: Male
  Weight: 108 kg

DRUGS (1)
  1. DELFLEX [Suspect]
     Active Substance: CALCIUM CHLORIDE\DEXTROSE\MAGNESIUM CHLORIDE\SODIUM CHLORIDE\SODIUM LACTATE
     Indication: End stage renal disease
     Dosage: 4 EXCHANGES OF 3 L, TREATMENT TIME 8 HOURS 56 MINS
     Route: 033

REACTIONS (1)
  - Cardiac arrest [Fatal]
